FAERS Safety Report 5941610-X (Version None)
Quarter: 2008Q4

REPORT INFORMATION
  Report Type: 
  Country: None (occurrence: None)
  Receive Date: 20081104
  Receipt Date: 20081104
  Transmission Date: 20090506
  Serious: Yes (Other)
  Sender: FDA-Public Use
  Company Number: None

PATIENT
  Age: 38 Year
  Sex: Male
  Weight: 104.7809 kg

DRUGS (2)
  1. REMERON [Suspect]
     Indication: DEPRESSION
     Dosage: 30MG DAILY AT BEDTIME PO
     Route: 048
     Dates: start: 20080922, end: 20081012
  2. REMERON [Suspect]
     Indication: SEROTONIN SYNDROME
     Dosage: 30MG DAILY AT BEDTIME PO
     Route: 048
     Dates: start: 20080922, end: 20081012

REACTIONS (8)
  - ANGER [None]
  - ANXIETY [None]
  - FAMILY STRESS [None]
  - FLAT AFFECT [None]
  - HOSTILITY [None]
  - HUNGER [None]
  - SOMNOLENCE [None]
  - WEIGHT INCREASED [None]
